FAERS Safety Report 7381577-3 (Version None)
Quarter: 2011Q1

REPORT INFORMATION
  Report Type: 
  Country: None (occurrence: None)
  Receive Date: 20110329
  Receipt Date: 20101001
  Transmission Date: 20110831
  Serious: Yes (Other)
  Sender: FDA-Public Use
  Company Number: US-BAYER-201017766NA

PATIENT
  Sex: Female

DRUGS (16)
  1. SYNTHROID [Concomitant]
     Indication: GASTROOESOPHAGEAL REFLUX DISEASE
  2. EFFEXOR [Concomitant]
     Indication: ANXIETY
  3. OCELLA [Suspect]
     Dosage: UNK
     Dates: start: 20080101, end: 20090701
  4. UNCODEABLE ^UNCLASSIFIABLE^ [Concomitant]
  5. METFORMIN HCL [Concomitant]
     Indication: DIABETES MELLITUS
  6. METROGEL [Concomitant]
  7. SPIRONOLACTONE [Concomitant]
  8. ASCORBIC ACID [Concomitant]
  9. YASMIN [Suspect]
     Indication: PREMENSTRUAL SYNDROME
     Dosage: AS USED DOSE: UNK
     Dates: start: 20040101, end: 20080101
  10. PAXIL [Concomitant]
     Indication: THYROID DISORDER
  11. PREVACID [Concomitant]
     Indication: DEPRESSION
  12. PREVACID [Concomitant]
     Indication: ANXIETY
  13. VITAMIN B12 NOS [Concomitant]
     Indication: INSOMNIA
  14. EFFEXOR [Concomitant]
     Indication: DEPRESSION
  15. CETIRIZINE HCL [Concomitant]
  16. UNCODEABLE ^UNCLASSIFIABLE^ [Concomitant]

REACTIONS (5)
  - CHOLESTEROSIS [None]
  - ABDOMINAL PAIN UPPER [None]
  - BILIARY DYSKINESIA [None]
  - WEIGHT DECREASED [None]
  - CHOLECYSTITIS CHRONIC [None]
